FAERS Safety Report 7492094-4 (Version None)
Quarter: 2011Q2

REPORT INFORMATION
  Report Type: 
  Country: None (occurrence: None)
  Receive Date: 20110519
  Receipt Date: 20110517
  Transmission Date: 20111010
  Serious: Yes (Death)
  Sender: FDA-Public Use
  Company Number: DE-ABBOTT-11P-062-0726442-00

PATIENT
  Sex: Female
  Weight: 65 kg

DRUGS (2)
  1. ZEMPLAR [Suspect]
     Indication: SECONDARY HYPERTHYROIDISM
  2. ZEMPLAR [Suspect]
     Indication: VITAMIN D DEFICIENCY

REACTIONS (1)
  - VENTRICULAR FIBRILLATION [None]
